FAERS Safety Report 12780101 (Version 1)
Quarter: 2016Q3

REPORT INFORMATION
  Report Type: Spontaneous
  Country: US (occurrence: US)
  Receive Date: 20160923
  Receipt Date: 20160923
  Transmission Date: 20161109
  Serious: Yes (Death, Life-Threatening, Hospitalization)
  Sender: FDA-Public Use
  Company Number: None

PATIENT
  Age: 62 Year
  Sex: Male
  Weight: 74.25 kg

DRUGS (9)
  1. OXYCODONE [Concomitant]
     Active Substance: OXYCODONE
  2. METHAPREDISILONE [Concomitant]
  3. MEGACE [Concomitant]
     Active Substance: MEGESTROL ACETATE
  4. SUTENT [Suspect]
     Active Substance: SUNITINIB MALATE
     Indication: RENAL CELL CARCINOMA
     Route: 048
     Dates: start: 20010816
  5. BISIPROLOL [Concomitant]
  6. BOOST [Concomitant]
     Active Substance: DIETARY SUPPLEMENT
  7. VYTORIN [Concomitant]
     Active Substance: EZETIMIBE\SIMVASTATIN
  8. HEPARIN [Concomitant]
     Active Substance: HEPARIN SODIUM
  9. ENSURE [Concomitant]
     Active Substance: AMINO ACIDS\DEXTROSE\ELECTROLYTES NOS\SOYBEAN OIL\VITAMINS

REACTIONS (11)
  - Fatigue [None]
  - Chromaturia [None]
  - Pneumonia [None]
  - Stomatitis [None]
  - Skin exfoliation [None]
  - Blood potassium decreased [None]
  - Gait disturbance [None]
  - Pulmonary thrombosis [None]
  - Heart rate irregular [None]
  - Decreased appetite [None]
  - Respiratory tract infection [None]

NARRATIVE: CASE EVENT DATE: 20160822
